FAERS Safety Report 5952217-2 (Version None)
Quarter: 2008Q4

REPORT INFORMATION
  Report Type: 
  Country: None (occurrence: None)
  Receive Date: 20081113
  Receipt Date: 20081103
  Transmission Date: 20090506
  Serious: No
  Sender: FDA-Public Use
  Company Number: GB-ELI_LILLY_AND_COMPANY-GB200811000490

PATIENT
  Age: 74 Year
  Sex: Female

DRUGS (2)
  1. CYMBALTA [Suspect]
     Indication: MAJOR DEPRESSION
     Dosage: 60 MG, UNKNOWN
     Route: 065
  2. ZYPREXA [Suspect]
     Indication: MAJOR DEPRESSION
     Dosage: 10 MG, UNKNOWN
     Route: 065

REACTIONS (3)
  - BLOOD ALKALINE PHOSPHATASE INCREASED [None]
  - GAMMA-GLUTAMYLTRANSFERASE INCREASED [None]
  - JOINT SWELLING [None]
